FAERS Safety Report 6107771-7 (Version None)
Quarter: 2009Q1

REPORT INFORMATION
  Report Type: 
  Country: None (occurrence: None)
  Receive Date: 20090309
  Receipt Date: 20090302
  Transmission Date: 20090719
  Serious: Yes (Other)
  Sender: FDA-Public Use
  Company Number: B0556950A

PATIENT
  Age: 16 Year
  Sex: Male

DRUGS (5)
  1. RELENZA [Suspect]
     Indication: INFLUENZA
     Dosage: 10MG TWICE PER DAY
     Route: 055
     Dates: start: 20090128, end: 20090130
  2. CLARITH [Concomitant]
     Indication: PHARYNGITIS
     Dosage: 400MG PER DAY
     Route: 048
     Dates: start: 20090128
  3. RESPLEN [Concomitant]
     Indication: PHARYNGITIS
     Dosage: 90MG PER DAY
     Route: 048
     Dates: start: 20090128
  4. MUCODYNE [Concomitant]
     Indication: PHARYNGITIS
     Dosage: 750MG PER DAY
     Route: 048
  5. TRANSAMIN [Concomitant]
     Indication: PHARYNGITIS
     Dosage: 750MG PER DAY
     Route: 048

REACTIONS (1)
  - HALLUCINATION [None]
